FAERS Safety Report 18309629 (Version 1)
Quarter: 2020Q3

REPORT INFORMATION
  Report Type: Spontaneous
  Country: US (occurrence: US)
  Receive Date: 20200924
  Receipt Date: 20200924
  Transmission Date: 20201103
  Serious: No
  Sender: FDA-Public Use
  Company Number: US-BIOMARINAP-US-2020-132347

PATIENT
  Age: 21 Year
  Sex: Female
  Weight: 96 kg

DRUGS (3)
  1. PALYNZIQ [Suspect]
     Active Substance: PEGVALIASE-PQPZ
     Indication: PHENYLKETONURIA
     Dosage: 20 MILLIGRAM, QOD
     Route: 058
  2. PALYNZIQ [Suspect]
     Active Substance: PEGVALIASE-PQPZ
     Dosage: UNK
     Route: 058
     Dates: start: 20200219
  3. MOTRIN [Concomitant]
     Active Substance: IBUPROFEN
     Indication: ARTHRALGIA

REACTIONS (4)
  - Otitis media [Recovered/Resolved]
  - Pyrexia [Recovered/Resolved]
  - Ear pain [Recovered/Resolved]
  - Wheezing [Recovered/Resolved]

NARRATIVE: CASE EVENT DATE: 20200501
